FAERS Safety Report 20836692 (Version 1)
Quarter: 2022Q2

REPORT INFORMATION
  Report Type: Report from Study
  Country: US (occurrence: US)
  Receive Date: 20220517
  Receipt Date: 20220517
  Transmission Date: 20220721
  Serious: Yes (Hospitalization, Other)
  Sender: FDA-Public Use
  Company Number: US-GILEAD-2022-0580892

PATIENT
  Sex: Female

DRUGS (23)
  1. AZTREONAM LYSINE [Suspect]
     Active Substance: AZTREONAM LYSINE
     Indication: Cystic fibrosis lung
     Dosage: 75 MG, TID FOR 28 DAYS ON AND 28 DAYS OFF
     Route: 055
     Dates: start: 20210125
  2. CREON [Concomitant]
     Active Substance: PANCRELIPASE AMYLASE\PANCRELIPASE LIPASE\PANCRELIPASE PROTEASE
     Dosage: 12K-38K-60 CAPSULE DR
     Dates: start: 20211015
  3. DYMISTA [Concomitant]
     Active Substance: AZELASTINE HYDROCHLORIDE\FLUTICASONE PROPIONATE
     Dosage: 137-50 MCG SPRAY/PUMP
     Dates: start: 20211015
  4. PREDNISONE [Concomitant]
     Active Substance: PREDNISONE
     Dosage: 10 MG TABLET
     Dates: start: 20211015
  5. TOBRAMYCIN [Concomitant]
     Active Substance: TOBRAMYCIN
     Dosage: 300 MG/5ML AMPUL-NEB
     Dates: start: 20211015
  6. SYMBICORT [Concomitant]
     Active Substance: BUDESONIDE\FORMOTEROL FUMARATE DIHYDRATE
     Dosage: 160-4.5MCG HFA AER AD
     Dates: start: 20211015
  7. SODIUM CHLORIDE [Concomitant]
     Active Substance: SODIUM CHLORIDE
     Dosage: 3 % VIAL-NEB
     Dates: start: 20211015
  8. MONTELUKAST SODIUM [Concomitant]
     Active Substance: MONTELUKAST SODIUM
     Dosage: 10 MG TABLET
     Dates: start: 20211015
  9. MAGNESIUM [Concomitant]
     Active Substance: MAGNESIUM
     Dosage: 200 MG TABLET
     Dates: start: 20211015
  10. IRON [Concomitant]
     Active Substance: IRON
     Dosage: 159(45)MG TABLET ER
     Dates: start: 20211015
  11. ALBUTEROL SULFATE [Concomitant]
     Active Substance: ALBUTEROL SULFATE
     Dosage: 2.5 MG/3ML VIAL-NEB
     Dates: start: 20211015
  12. PULMOZYME [Concomitant]
     Active Substance: DORNASE ALFA
     Dosage: 1 MG/ML SOLUTION
     Dates: start: 20211015
  13. ZYRTEC [Concomitant]
     Active Substance: CETIRIZINE HYDROCHLORIDE
     Dosage: 10 MG TABLET
     Dates: start: 20211015
  14. TRIKAFTA [Concomitant]
     Active Substance: ELEXACAFTOR\IVACAFTOR\TEZACAFTOR
     Dosage: 100-50-75 TABLET SEQ
     Dates: start: 20211015
  15. LOESTRIN NOS [Concomitant]
     Active Substance: ETHINYL ESTRADIOL\NORETHINDRONE ACETATE
     Dosage: 1MG-20MCG TABLET
     Dates: start: 20211015
  16. OMEPRAZOLE [Concomitant]
     Active Substance: OMEPRAZOLE
     Dosage: 20 MG CAPSULE DR
     Dates: start: 20211015
  17. VITAMINS NOS [Concomitant]
     Active Substance: VITAMINS
     Dosage: 1 AS DIRECTED
     Dates: start: 20211015
  18. VITAMIN D2 [Concomitant]
     Active Substance: ERGOCALCIFEROL
     Dosage: 1250 MCG CAPSULE
     Dates: start: 20211015
  19. PROAIR HFA [Concomitant]
     Active Substance: ALBUTEROL SULFATE
     Dosage: HFA 90 MCG HFA AER AD
     Dates: start: 20211015
  20. AZELASTINE [Concomitant]
     Active Substance: AZELASTINE
     Dosage: HCL 137 MCG SPRAY/PUMP
     Dates: start: 20211015
  21. URSODIOL [Concomitant]
     Active Substance: URSODIOL
     Dosage: 250 MG TABLET
     Dates: start: 20211015
  22. ONDANSETRON [Concomitant]
     Active Substance: ONDANSETRON
     Dosage: HCL 4 MG TABLET
     Dates: start: 20211015
  23. MELATONIN [Concomitant]
     Active Substance: MELATONIN
     Dosage: 10 MG TABLET
     Dates: start: 20211015

REACTIONS (1)
  - Cystic fibrosis [Unknown]
